FAERS Safety Report 8529044-5 (Version None)
Quarter: 2012Q3

REPORT INFORMATION
  Report Type: 
  Country: None (occurrence: None)
  Receive Date: 20120723
  Receipt Date: 20120716
  Transmission Date: 20120928
  Serious: Yes (Hospitalization, Other)
  Sender: FDA-Public Use
  Company Number: US-ACCORD-014142

PATIENT
  Age: 65 Year
  Sex: Male

DRUGS (2)
  1. DONEPEZIL HCL [Suspect]
     Indication: SCHIZOAFFECTIVE DISORDER BIPOLAR TYPE
     Dosage: 10 MG NIGHTLY
  2. FLUOXETINE HCL [Interacting]
     Indication: SCHIZOAFFECTIVE DISORDER BIPOLAR TYPE

REACTIONS (3)
  - DRUG INTERACTION [None]
  - CHOLINERGIC SYNDROME [None]
  - OFF LABEL USE [None]
